FAERS Safety Report 10283783 (Version 5)
Quarter: 2014Q4

REPORT INFORMATION
  Report Type: Spontaneous
  Country: US (occurrence: None)
  Receive Date: 20140703
  Receipt Date: 20141229
  Transmission Date: 20150528
  Serious: Yes (Hospitalization)
  Sender: FDA-Public Use
  Company Number: UNT-2014-002844

PATIENT
  Age: 53 Year
  Sex: Male
  Weight: 92.5 kg

DRUGS (2)
  1. REMODULIN [Suspect]
     Active Substance: TREPROSTINIL
     Indication: COR PULMONALE CHRONIC
     Dosage: 0.091 UG/KG/MIN, CONTINUING, SUBCUTANEOUS
     Route: 058
     Dates: start: 20140328
  2. ADCIRCA [Concomitant]
     Active Substance: TADALAFIL

REACTIONS (8)
  - Liver disorder [None]
  - Haemorrhage [None]
  - Fluid retention [None]
  - Pulmonary oedema [None]
  - Pleural effusion [None]
  - Fluid overload [None]
  - Cardiac disorder [None]
  - Right ventricular failure [None]

NARRATIVE: CASE EVENT DATE: 2014
